FAERS Safety Report 19044481 (Version 1)
Quarter: 2021Q1

REPORT INFORMATION
  Report Type: Spontaneous
  Country: US (occurrence: US)
  Receive Date: 20210323
  Receipt Date: 20210323
  Transmission Date: 20210420
  Serious: No
  Sender: FDA-Public Use
  Company Number: US-GLENMARK PHARMACEUTICALS-2021GMK051682

PATIENT

DRUGS (3)
  1. ROPINIROLE TABLETS USP, 3 MG [Suspect]
     Active Substance: ROPINIROLE HYDROCHLORIDE
     Indication: RESTLESS LEGS SYNDROME
     Dosage: 3 MILLIGRAM, TID
     Route: 065
     Dates: start: 2001
  2. GABAPENTIN. [Concomitant]
     Active Substance: GABAPENTIN
     Indication: NERVE INJURY
     Dosage: 800 MILLIGRAM, TID (7 YEARS BEFORE THE REPORT)
     Route: 065
     Dates: start: 2014
  3. PRAMIPEXOLE. [Concomitant]
     Active Substance: PRAMIPEXOLE
     Indication: RESTLESS LEGS SYNDROME
     Dosage: UNK, TID
     Route: 065

REACTIONS (1)
  - Drug ineffective [Unknown]
